FAERS Safety Report 4971343-8 (Version None)
Quarter: 2006Q2

REPORT INFORMATION
  Report Type: 
  Country: None (occurrence: None)
  Receive Date: 20060406
  Receipt Date: 20060330
  Transmission Date: 20061013
  Serious: Yes (Death, Hospitalization)
  Sender: FDA-Public Use
  Company Number: LTI2006A00071

PATIENT
  Age: 78 Year
  Sex: Male

DRUGS (9)
  1. ACTOS [Suspect]
     Indication: DIABETES MELLITUS NON-INSULIN-DEPENDENT
     Dosage: 30 MG (30 MG, 1 IN 1 D)
     Route: 048
     Dates: start: 20050601, end: 20060223
  2. STAGID (METFORMIN EMBONATE) [Concomitant]
  3. DIAMICRON (GLICLAZIDE) [Concomitant]
  4. KARDEGIC (ACETYLSALICYLIC ACID) [Concomitant]
  5. NISICO (HYDROCHLOROTHIAZIDE, VALSARTAN) [Concomitant]
  6. SECTRAL [Concomitant]
  7. DIGOXIN [Concomitant]
  8. PREVISCAN (FLUINDIONE) [Concomitant]
  9. POTASSIUM CHLORIDE [Concomitant]

REACTIONS (13)
  - AORTIC VALVE INCOMPETENCE [None]
  - CARDIAC FAILURE CONGESTIVE [None]
  - CEREBRAL ATROPHY [None]
  - DISORIENTATION [None]
  - GENERALISED OEDEMA [None]
  - HYPOKINESIA [None]
  - INCORRECT DOSE ADMINISTERED [None]
  - MITRAL VALVE INCOMPETENCE [None]
  - PANCYTOPENIA [None]
  - PLEURAL EFFUSION [None]
  - RENAL FAILURE [None]
  - TRICUSPID VALVE INCOMPETENCE [None]
  - WEIGHT INCREASED [None]
